FAERS Safety Report 18586485 (Version 1)
Quarter: 2020Q4

REPORT INFORMATION
  Report Type: Spontaneous
  Country: CN (occurrence: CN)
  Receive Date: 20201204
  Receipt Date: 20201204
  Transmission Date: 20210114
  Serious: Yes (Life-Threatening, Hospitalization, Disabling)
  Sender: FDA-Public Use
  Company Number: CN-BAXTER-2020BAX024440

PATIENT
  Age: 4 Year
  Sex: Male

DRUGS (10)
  1. PALONOSETRON HYDROCHLORIDE. [Suspect]
     Active Substance: PALONOSETRON HYDROCHLORIDE
     Indication: NEUROBLASTOMA
     Route: 042
     Dates: start: 20200304, end: 20200306
  2. UROMITEXAN [Suspect]
     Active Substance: MESNA
     Indication: NEUROBLASTOMA
  3. VINDESINE SULFATE [Suspect]
     Active Substance: VINDESINE SULFATE
     Indication: RETROPERITONEAL CANCER
     Dosage: 1 TO 5 CYCLES
     Route: 041
  4. DOXORUBICIN HYDROCHLORIDE. [Suspect]
     Active Substance: DOXORUBICIN HYDROCHLORIDE
     Indication: RETROPERITONEAL CANCER
     Dosage: 1 TO 5 CYCLES
     Route: 041
  5. DOXORUBICIN HYDROCHLORIDE. [Suspect]
     Active Substance: DOXORUBICIN HYDROCHLORIDE
     Indication: NEUROBLASTOMA
     Dosage: CYCLE 6, DAY 1 TO 3
     Route: 041
     Dates: start: 20200304, end: 20200306
  6. ENDOXAN [Suspect]
     Active Substance: CYCLOPHOSPHAMIDE
     Indication: RETROPERITONEAL CANCER
     Dosage: 1 TO 5 CYCLES
     Route: 041
  7. VINDESINE SULFATE [Suspect]
     Active Substance: VINDESINE SULFATE
     Indication: NEUROBLASTOMA
     Dosage: CYCLE 6, DAY 1 TO 3
     Route: 041
     Dates: start: 20200304, end: 20200306
  8. ENDOXAN [Suspect]
     Active Substance: CYCLOPHOSPHAMIDE
     Indication: NEUROBLASTOMA
     Dosage: CYCLE 6, DAY 1 TO 2
     Route: 041
     Dates: start: 20200304, end: 20200305
  9. PALONOSETRON HYDROCHLORIDE. [Suspect]
     Active Substance: PALONOSETRON HYDROCHLORIDE
     Indication: RETROPERITONEAL CANCER
  10. UROMITEXAN [Suspect]
     Active Substance: MESNA
     Indication: RETROPERITONEAL CANCER
     Route: 041
     Dates: start: 20200304, end: 20200305

REACTIONS (1)
  - Myelosuppression [Unknown]

NARRATIVE: CASE EVENT DATE: 20200309
